FAERS Safety Report 16830673 (Version 1)
Quarter: 2019Q3

REPORT INFORMATION
  Report Type: Spontaneous
  Country: FI (occurrence: FI)
  Receive Date: 20190920
  Receipt Date: 20190920
  Transmission Date: 20191005
  Serious: Yes (Other)
  Sender: FDA-Public Use
  Company Number: FI-EMD SERONO-9116999

PATIENT
  Age: 48 Year
  Sex: Female

DRUGS (1)
  1. REBIF [Suspect]
     Active Substance: INTERFERON BETA-1A
     Indication: MULTIPLE SCLEROSIS
     Dates: start: 2015, end: 20190912

REACTIONS (2)
  - Asthenia [Unknown]
  - Basedow^s disease [Unknown]

NARRATIVE: CASE EVENT DATE: 2015
